FAERS Safety Report 6630280-3 (Version None)
Quarter: 2010Q1

REPORT INFORMATION
  Report Type: 
  Country: None (occurrence: None)
  Receive Date: 20100311
  Receipt Date: 20100305
  Transmission Date: 20100710
  Serious: Yes (Life-Threatening)
  Sender: FDA-Public Use
  Company Number: B0639182A

PATIENT
  Age: 62 Year
  Sex: Female

DRUGS (1)
  1. ZINNAT [Suspect]
     Dosage: 250MG TWICE PER DAY
     Route: 048
     Dates: start: 20100304, end: 20100304

REACTIONS (6)
  - ANAPHYLACTIC REACTION [None]
  - CHEST DISCOMFORT [None]
  - DYSPNOEA [None]
  - PALLOR [None]
  - RASH GENERALISED [None]
  - TACHYCARDIA [None]
